FAERS Safety Report 23986064 (Version 3)
Quarter: 2024Q4

REPORT INFORMATION
  Report Type: Spontaneous
  Country: JO (occurrence: JO)
  Receive Date: 20240618
  Receipt Date: 20241009
  Transmission Date: 20250114
  Serious: No
  Sender: PFIZER
  Company Number: JO-PFIZER INC-PV202400068129

PATIENT

DRUGS (1)
  1. GENOTROPIN [Suspect]
     Active Substance: SOMATROPIN
     Dosage: UNK

REACTIONS (2)
  - Device leakage [Unknown]
  - Poor quality device used [Unknown]
